FAERS Safety Report 24874312 (Version 1)
Quarter: 2025Q1

REPORT INFORMATION
  Report Type: Spontaneous
  Country: US (occurrence: US)
  Receive Date: 20250122
  Receipt Date: 20250122
  Transmission Date: 20250408
  Serious: Yes (Other)
  Sender: PFIZER
  Company Number: US-PFIZER INC-202500010798

PATIENT
  Age: 75 Year
  Sex: Female

DRUGS (1)
  1. PAXLOVID [Suspect]
     Active Substance: NIRMATRELVIR\RITONAVIR
     Indication: COVID-19 treatment
     Dosage: 2X/DAY (ONE PACKET 1ST DAY, TWO PACKETS 2ND DAY, TWO PACKETS 3RD DAY)
     Dates: start: 20250113, end: 20250115

REACTIONS (12)
  - Anaphylactic reaction [Unknown]
  - Oropharyngeal pain [Unknown]
  - Chest pain [Unknown]
  - Cough [Unknown]
  - Oesophageal pain [Unknown]
  - Dysphagia [Recovered/Resolved]
  - Sensation of foreign body [Recovered/Resolved]
  - Pharyngeal swelling [Recovered/Resolved]
  - Fatigue [Unknown]
  - Asthenia [Unknown]
  - Middle insomnia [Unknown]
  - Dehydration [Unknown]

NARRATIVE: CASE EVENT DATE: 20250101
